FAERS Safety Report 24627463 (Version 2)
Quarter: 2024Q4

REPORT INFORMATION
  Report Type: Spontaneous
  Country: FR (occurrence: FR)
  Receive Date: 20241116
  Receipt Date: 20241123
  Transmission Date: 20250115
  Serious: Yes (Other)
  Sender: CELLTRION
  Company Number: FR-CELLTRION INC.-2024FR027895

PATIENT

DRUGS (4)
  1. INFLIXIMAB [Suspect]
     Active Substance: INFLIXIMAB
     Indication: Product used for unknown indication
     Dosage: 400 MG EVERY 6 WEEKS/5MG/KG
     Route: 042
     Dates: start: 20241105, end: 20241105
  2. VONICOG ALFA [Concomitant]
     Active Substance: VONICOG ALFA
     Dosage: 1300 UI 1 H BEFORE CORTISONE FOOT INFILTRATION IN RHEUMATOLOGY
     Dates: start: 20241105
  3. CORTISONE [Concomitant]
     Active Substance: CORTISONE
     Dosage: UNK
     Dates: start: 20241105
  4. POLARAMINE [Concomitant]
     Active Substance: DEXCHLORPHENIRAMINE MALEATE
     Dosage: UNK
     Route: 041
     Dates: start: 20241105

REACTIONS (12)
  - Shock [Unknown]
  - Chest discomfort [Unknown]
  - Nausea [Unknown]
  - Paraesthesia [Unknown]
  - Hot flush [Unknown]
  - Vision blurred [Unknown]
  - Syncope [Unknown]
  - Malaise [Unknown]
  - Dizziness [Unknown]
  - Product quality issue [Unknown]
  - Wrong technique in product usage process [Unknown]
  - Product preparation error [Unknown]

NARRATIVE: CASE EVENT DATE: 20241105
